FAERS Safety Report 18086632 (Version 1)
Quarter: 2020Q3

REPORT INFORMATION
  Report Type: Spontaneous
  Country: DE (occurrence: DE)
  Receive Date: 20200729
  Receipt Date: 20200729
  Transmission Date: 20201103
  Serious: No
  Sender: FDA-Public Use
  Company Number: DE-LUPIN PHARMACEUTICALS INC.-2019-07505

PATIENT
  Age: 3 Year
  Sex: Male

DRUGS (1)
  1. LEVETIRACETAM?HORMOSAN [Suspect]
     Active Substance: LEVETIRACETAM
     Indication: PRODUCT USED FOR UNKNOWN INDICATION
     Dosage: UNK (ORAL SOLUTION, 100 MG PER ML)
     Route: 048
     Dates: start: 201908

REACTIONS (3)
  - Syringe issue [Unknown]
  - Product package associated injury [Unknown]
  - Incorrect dose administered [Unknown]
